FAERS Safety Report 8856072 (Version 1)
Quarter: 2012Q4

REPORT INFORMATION
  Report Type: Spontaneous
  Country: US (occurrence: None)
  Receive Date: 20121022
  Receipt Date: 20121022
  Transmission Date: 20130627
  Serious: Yes (Hospitalization)
  Sender: FDA-Public Use
  Company Number: None

PATIENT
  Age: 80 Year
  Sex: Male
  Weight: 94 kg

DRUGS (1)
  1. IMIPENEM AND CILASTATIN [Suspect]
     Indication: ESCHERICHIA BACTEREMIA
     Dosage: 500mg q8h IV
     Route: 042
     Dates: start: 20120808, end: 20120814

REACTIONS (1)
  - Convulsion [None]
